FAERS Safety Report 7958977-3 (Version None)
Quarter: 2011Q4

REPORT INFORMATION
  Report Type: 
  Country: None (occurrence: None)
  Receive Date: 20111206
  Receipt Date: 20111126
  Transmission Date: 20120403
  Serious: Yes (Life-Threatening)
  Sender: FDA-Public Use
  Company Number: SA-SANOFI-AVENTIS-2011SA077877

PATIENT
  Age: 46 Year
  Sex: Male
  Weight: 115 kg

DRUGS (8)
  1. APIDRA [Concomitant]
     Indication: TYPE 1 DIABETES MELLITUS
  2. ATORVASTATIN [Concomitant]
     Indication: PROPHYLAXIS
     Route: 048
  3. LANTUS [Suspect]
     Indication: TYPE 1 DIABETES MELLITUS
     Dosage: 34 IU IN THE MORNING AND 24 IU AT NIGHT
     Route: 058
     Dates: start: 20090101
  4. LANTUS [Suspect]
     Dosage: 40 IU IN THE MORNING AND 30 IU AT NIGHT
     Route: 058
     Dates: end: 20090101
  5. SOLOSTAR [Suspect]
     Indication: DEVICE THERAPY
     Dates: start: 20090101
  6. LANTUS [Suspect]
     Dosage: 32 IU IN THE MORNING AND 22 IU AT NIGHT
     Route: 058
  7. ZESTRIL [Concomitant]
     Indication: PROPHYLAXIS
     Route: 048
  8. ASPIRIN [Concomitant]
     Indication: PROPHYLAXIS
     Route: 048

REACTIONS (5)
  - DIZZINESS [None]
  - HYPOGLYCAEMIC COMA [None]
  - VISION BLURRED [None]
  - HYPOGLYCAEMIA [None]
  - DRUG ADMINISTRATION ERROR [None]
